FAERS Safety Report 9298194 (Version 1)
Quarter: 2013Q2

REPORT INFORMATION
  Report Type: Spontaneous
  Country: US (occurrence: US)
  Receive Date: 20130520
  Receipt Date: 20130520
  Transmission Date: 20140414
  Serious: Yes (Life-Threatening, Other)
  Sender: FDA-Public Use
  Company Number: US-ROCHE-1223986

PATIENT
  Sex: Female

DRUGS (2)
  1. XOLAIR [Suspect]
     Indication: PRODUCT USED FOR UNKNOWN INDICATION
     Route: 065
  2. VITAMIN B12 [Concomitant]

REACTIONS (11)
  - Feeling abnormal [Unknown]
  - Abnormal behaviour [Unknown]
  - Feeling drunk [Unknown]
  - Fall [Unknown]
  - Paraesthesia oral [Unknown]
  - Pruritus [Unknown]
  - Hypoaesthesia teeth [Unknown]
  - Incoherent [Unknown]
  - Memory impairment [Unknown]
  - Hypoaesthesia oral [Unknown]
  - Osteoporosis [Unknown]
